FAERS Safety Report 5449488-8 (Version None)
Quarter: 2007Q3

REPORT INFORMATION
  Report Type: 
  Country: None (occurrence: None)
  Receive Date: 20070907
  Receipt Date: 20070828
  Transmission Date: 20080115
  Serious: No
  Sender: FDA-Public Use
  Company Number: 2007-163636-NL

PATIENT
  Age: 85 Year
  Sex: Male

DRUGS (2)
  1. NANDROLONE DECANOATE [Suspect]
     Indication: ANAEMIA
     Dosage: 25 MG WEEKLY/25 MG OM
  2. MEPITIOSTANE [Concomitant]

REACTIONS (3)
  - ACUTE LEUKAEMIA [None]
  - HAEMOGLOBIN DECREASED [None]
  - PLATELET COUNT DECREASED [None]
